FAERS Safety Report 24198598 (Version 1)
Quarter: 2024Q3

REPORT INFORMATION
  Report Type: Other
  Country: AU (occurrence: AU)
  Receive Date: 20240812
  Receipt Date: 20240812
  Transmission Date: 20241016
  Serious: Yes (Other)
  Sender: LUPIN
  Company Number: AU-LUPIN PHARMACEUTICALS INC.-2024-07620

PATIENT

DRUGS (14)
  1. PREGABALIN [Suspect]
     Active Substance: PREGABALIN
     Indication: Product used for unknown indication
     Dosage: UNK
     Route: 065
  2. AGALSIDASE BETA [Suspect]
     Active Substance: AGALSIDASE BETA
     Indication: Product used for unknown indication
     Dosage: UNK
     Route: 065
  3. VALPROATE SODIUM [Suspect]
     Active Substance: VALPROATE SODIUM
     Indication: Product used for unknown indication
     Dosage: UNK
     Route: 065
  4. ATORVASTATIN [Concomitant]
     Active Substance: ATORVASTATIN
     Indication: Product used for unknown indication
     Dosage: UNK
     Route: 065
  5. ACETAMINOPHEN [Concomitant]
     Active Substance: ACETAMINOPHEN
     Indication: Product used for unknown indication
     Dosage: UNK
     Route: 065
  6. PERINDOPRIL [Concomitant]
     Active Substance: PERINDOPRIL
     Indication: Product used for unknown indication
     Dosage: UNK
     Route: 065
  7. SEMAGLUTIDE [Concomitant]
     Active Substance: SEMAGLUTIDE
     Indication: Product used for unknown indication
     Dosage: UNK
     Route: 065
  8. POLYETHYLENE GLYCOLS [Concomitant]
     Active Substance: POLYETHYLENE GLYCOLS
     Indication: Product used for unknown indication
     Dosage: UNK
     Route: 065
  9. SEROTONIN [Concomitant]
     Active Substance: SEROTONIN
     Indication: Product used for unknown indication
     Dosage: UNK
     Route: 065
  10. CALCIUM [Concomitant]
     Active Substance: CALCIUM
     Indication: Product used for unknown indication
     Dosage: UNK
     Route: 065
  11. FUROSEMIDE [Concomitant]
     Active Substance: FUROSEMIDE
     Indication: Product used for unknown indication
     Dosage: UNK
     Route: 065
  12. IRON [Concomitant]
     Active Substance: IRON
     Indication: Product used for unknown indication
     Dosage: UNK
     Route: 065
  13. MELATONIN [Concomitant]
     Active Substance: MELATONIN
     Indication: Product used for unknown indication
     Dosage: UNK
     Route: 065
  14. TAPENTADOL [Concomitant]
     Active Substance: TAPENTADOL
     Indication: Product used for unknown indication
     Dosage: UNK
     Route: 065

REACTIONS (54)
  - Abdominal distension [Unknown]
  - Abdominal pain [Unknown]
  - Anal incontinence [Unknown]
  - Angiokeratoma [Unknown]
  - Blepharospasm [Unknown]
  - Brain death [Unknown]
  - Brain herniation [Unknown]
  - Brain oedema [Unknown]
  - COVID-19 [Unknown]
  - Cerebral ischaemia [Unknown]
  - Coma [Unknown]
  - Condition aggravated [Unknown]
  - Decreased appetite [Unknown]
  - Diarrhoea [Unknown]
  - Dizziness postural [Unknown]
  - Dysarthria [Unknown]
  - Eating disorder [Unknown]
  - Fatigue [Unknown]
  - Feeling abnormal [Unknown]
  - Feeling cold [Unknown]
  - Gastrointestinal ischaemia [Unknown]
  - Generalised tonic-clonic seizure [Unknown]
  - Hyperhidrosis [Unknown]
  - Hypotension [Unknown]
  - Hypothyroidism [Unknown]
  - Hypovolaemia [Unknown]
  - Hypoxia [Unknown]
  - Livedo reticularis [Unknown]
  - Loss of consciousness [Unknown]
  - Malaise [Unknown]
  - Micturition urgency [Unknown]
  - Muscular weakness [Unknown]
  - Myoclonus [Unknown]
  - Nasal congestion [Unknown]
  - Nasopharyngitis [Unknown]
  - Nausea [Unknown]
  - Neuropathy peripheral [Unknown]
  - Nocturia [Unknown]
  - Pain [Unknown]
  - Pain in extremity [Unknown]
  - Perforation [Unknown]
  - Presyncope [Unknown]
  - Pupil fixed [Unknown]
  - Renal colic [Unknown]
  - Rhinorrhoea [Unknown]
  - Seizure [Unknown]
  - Sleep disorder due to a general medical condition [Unknown]
  - Status epilepticus [Unknown]
  - Tonic posturing [Unknown]
  - Tremor [Unknown]
  - Vein disorder [Unknown]
  - Vertebrobasilar dolichoectasia [Unknown]
  - Vomiting [Unknown]
  - Weight decreased [Unknown]
